FAERS Safety Report 13765704 (Version 1)
Quarter: 2017Q3

REPORT INFORMATION
  Report Type: Spontaneous
  Country: US (occurrence: US)
  Receive Date: 20170718
  Receipt Date: 20170718
  Transmission Date: 20171127
  Serious: No
  Sender: FDA-Public Use
  Company Number: None

PATIENT
  Age: 37 Year
  Sex: Female

DRUGS (1)
  1. MYCOPHENOLATE TAB 180MG DR [Suspect]
     Active Substance: MYCOPHENOLIC ACID

REACTIONS (1)
  - Manufacturing product shipping issue [None]

NARRATIVE: CASE EVENT DATE: 20170622
